FAERS Safety Report 4488157-8 (Version None)
Quarter: 2004Q4

REPORT INFORMATION
  Report Type: 
  Country: None (occurrence: None)
  Receive Date: 20041028
  Receipt Date: 20040920
  Transmission Date: 20050328
  Serious: Yes (Other)
  Sender: FDA-Public Use
  Company Number: PHBS2004ES12523

PATIENT
  Age: 41 Year
  Sex: Female

DRUGS (5)
  1. CYCLOSPORINE [Suspect]
     Indication: COLITIS ULCERATIVE
     Dosage: 4 MG/KG/D
     Route: 042
  2. CYCLOSPORINE [Suspect]
     Route: 048
  3. CORTICOSTEROIDS [Concomitant]
  4. ENEMAS [Concomitant]
  5. MESALAMINE [Concomitant]

REACTIONS (2)
  - DISEASE RECURRENCE [None]
  - IDIOPATHIC THROMBOCYTOPENIC PURPURA [None]
